FAERS Safety Report 24069771 (Version 2)
Quarter: 2024Q3

REPORT INFORMATION
  Report Type: Report from Study
  Country: CO (occurrence: CO)
  Receive Date: 20240710
  Receipt Date: 20240710
  Transmission Date: 20241016
  Serious: No
  Sender: ROCHE
  Company Number: CO-ROCHE-3447734

PATIENT
  Age: 70 Year
  Sex: Male
  Weight: 54.1 kg

DRUGS (19)
  1. ALECTINIB [Suspect]
     Active Substance: ALECTINIB
     Indication: Non-small cell lung cancer metastatic
     Route: 048
     Dates: start: 20220520
  2. BISACODYL [Concomitant]
     Active Substance: BISACODYL
     Route: 048
     Dates: start: 20220611
  3. ACETAMINOPHEN [Concomitant]
     Active Substance: ACETAMINOPHEN
     Dates: start: 20221110
  4. ZOLEDRONIC ACID [Concomitant]
     Active Substance: ZOLEDRONIC ACID
     Route: 042
     Dates: start: 20230819, end: 20230819
  5. PREGABALIN [Concomitant]
     Active Substance: PREGABALIN
     Route: 048
     Dates: start: 20230819, end: 20230824
  6. PREGABALIN [Concomitant]
     Active Substance: PREGABALIN
     Route: 048
     Dates: start: 20231003
  7. OXYGEN [Concomitant]
     Active Substance: OXYGEN
     Route: 045
     Dates: start: 202307
  8. HYDROMORPHONE [Concomitant]
     Active Substance: HYDROMORPHONE
     Route: 042
     Dates: start: 20230824, end: 20230825
  9. MORPHINE HYDROCHLORIDE [Concomitant]
     Active Substance: MORPHINE HYDROCHLORIDE
     Route: 048
     Dates: start: 20230826, end: 202310
  10. PREGABALIN [Concomitant]
     Active Substance: PREGABALIN
     Dates: start: 20230825, end: 20231002
  11. POLYETHYLENE GLYCOL [Concomitant]
     Active Substance: POLYETHYLENE GLYCOL
     Dates: start: 20230825
  12. FOLIC ACID [Concomitant]
     Active Substance: FOLIC ACID
     Dates: start: 20230921
  13. CYANOCOBALAMIN [Concomitant]
     Active Substance: CYANOCOBALAMIN
     Route: 030
     Dates: start: 20231005, end: 20231005
  14. DEXAMETHASONE [Concomitant]
     Active Substance: DEXAMETHASONE
     Dates: start: 20230922, end: 20230929
  15. LIDOCAINE [Concomitant]
     Active Substance: LIDOCAINE
     Dates: start: 20231002
  16. ENOXAPARIN [Concomitant]
     Active Substance: ENOXAPARIN
     Route: 058
     Dates: start: 20231018, end: 20231018
  17. APIXABAN [Concomitant]
     Active Substance: APIXABAN
     Route: 048
     Dates: start: 20231018
  18. PEMETREXED [Concomitant]
     Active Substance: PEMETREXED
     Dates: start: 20231005
  19. CARBOPLATIN [Concomitant]
     Active Substance: CARBOPLATIN
     Dates: start: 20231005

REACTIONS (2)
  - Anaemia [Not Recovered/Not Resolved]
  - Urinary tract infection [Recovered/Resolved]

NARRATIVE: CASE EVENT DATE: 20230831
